FAERS Safety Report 9536475 (Version 1)
Quarter: 2013Q2

REPORT INFORMATION
  Report Type: Spontaneous
  Country: US (occurrence: None)
  Receive Date: 20130510
  Receipt Date: 20130510
  Transmission Date: 20140414
  Serious: Yes (Other)
  Sender: FDA-Public Use
  Company Number: US-011279

PATIENT
  Age: 62 Year
  Sex: Male
  Weight: 90.72 kg

DRUGS (3)
  1. PICO-SALIX [Suspect]
     Indication: BOWEL PREPARATION
     Dates: start: 20130326
  2. LISINOPRIL [Concomitant]
  3. OXYCODONE [Concomitant]

REACTIONS (2)
  - Blood pressure increased [None]
  - Muscle spasticity [None]
